FAERS Safety Report 6255972-X (Version None)
Quarter: 2009Q3

REPORT INFORMATION
  Report Type: 
  Country: None (occurrence: None)
  Receive Date: 20090706
  Receipt Date: 20090701
  Transmission Date: 20100115
  Serious: Yes (Life-Threatening)
  Sender: FDA-Public Use
  Company Number: US-BRISTOL-MYERS SQUIBB COMPANY-14687289

PATIENT
  Age: 65 Year
  Sex: Male

DRUGS (7)
  1. CISPLATIN [Suspect]
     Indication: BLADDER CANCER
     Dosage: INITIATED ON 28APR09.
     Route: 042
     Dates: start: 20090526, end: 20090526
  2. GEMCITABINE [Suspect]
     Indication: BLADDER CANCER
     Dosage: START DATE- 28-APR-2009; ON 12MAY09 DOSE REDUCED TO 75% (DUE TO NETUROPENIA); ON DAYS 1,8,15
     Route: 042
     Dates: start: 20090609, end: 20090609
  3. DILANTIN [Concomitant]
     Indication: CONVULSION
  4. PHENOBARBITAL [Concomitant]
     Indication: CONVULSION
  5. LORAZEPAM [Concomitant]
  6. ALEVE [Concomitant]
  7. COMPAZINE [Concomitant]

REACTIONS (1)
  - PULMONARY EMBOLISM [None]
